FAERS Safety Report 9649382 (Version 1)
Quarter: 2013Q4

REPORT INFORMATION
  Report Type: Spontaneous
  Country: FR (occurrence: FR)
  Receive Date: 20131028
  Receipt Date: 20131028
  Transmission Date: 20140711
  Serious: Yes (Life-Threatening, Hospitalization, Other)
  Sender: FDA-Public Use
  Company Number: FR-GILEAD-2013-0085856

PATIENT
  Age: 43 Year
  Sex: Male

DRUGS (7)
  1. TRUVADA [Suspect]
     Indication: HIV INFECTION
     Dosage: 15 DF, ONCE
     Route: 048
     Dates: start: 20130921, end: 20130921
  2. TRUVADA [Suspect]
     Dosage: UNK
     Dates: start: 20130923
  3. ISENTRESS [Suspect]
     Indication: HIV INFECTION
     Dosage: 30 DF, UNK
     Route: 048
     Dates: start: 20130921, end: 20130921
  4. ISENTRESS [Suspect]
     Dosage: UNK
     Dates: start: 20130923
  5. THERALENE [Suspect]
     Indication: SUICIDE ATTEMPT
     Dosage: 1 DF, ONCE
     Route: 048
     Dates: start: 20130921, end: 20130921
  6. TERALITHE [Suspect]
     Indication: SUICIDE ATTEMPT
     Dosage: 12000 MG, UNK
     Route: 048
     Dates: start: 20130921, end: 20130921
  7. ALCOHOL [Suspect]
     Indication: SUICIDE ATTEMPT
     Dosage: UNK
     Dates: start: 20130921, end: 20130921

REACTIONS (3)
  - Coma [Recovered/Resolved]
  - Suicide attempt [Recovered/Resolved]
  - Overdose [Recovered/Resolved]
